FAERS Safety Report 7098848-0 (Version None)
Quarter: 2010Q4

REPORT INFORMATION
  Report Type: 
  Country: None (occurrence: None)
  Receive Date: 20101110
  Receipt Date: 20101110
  Transmission Date: 20110411
  Serious: Yes (Hospitalization)
  Sender: FDA-Public Use
  Company Number: None

PATIENT
  Age: 77 Year
  Sex: Male
  Weight: 95 kg

DRUGS (1)
  1. ACETAMINOPHEN W/ CODEINE [Suspect]
     Indication: PAIN
     Dosage: 10 ML QID PO
     Route: 048
     Dates: start: 20100419, end: 20100422

REACTIONS (3)
  - CONSTIPATION [None]
  - FLATULENCE [None]
  - RESPIRATORY DEPRESSION [None]
